FAERS Safety Report 10730527 (Version 1)
Quarter: 2015Q1

REPORT INFORMATION
  Report Type: Spontaneous
  Country: US (occurrence: None)
  Receive Date: 20150112
  Receipt Date: 20150112
  Transmission Date: 20150721
  Serious: No
  Sender: FDA-Public Use
  Company Number: 1455103

PATIENT
  Age: 85 Year
  Sex: Male

DRUGS (2)
  1. GAZYVA [Suspect]
     Active Substance: OBINUTUZUMAB
     Indication: CHRONIC LYMPHOCYTIC LEUKAEMIA RECURRENT
  2. CHLORAMBUCIL (CHLORAMBUCIL) [Concomitant]

REACTIONS (4)
  - Neutropenia [None]
  - Immunosuppression [None]
  - Pneumonia [None]
  - Fatigue [None]
